FAERS Safety Report 9687164 (Version 1)
Quarter: 2013Q4

REPORT INFORMATION
  Report Type: Spontaneous
  Country: US (occurrence: US)
  Receive Date: 20131113
  Receipt Date: 20131113
  Transmission Date: 20140711
  Serious: Yes (Other)
  Sender: FDA-Public Use
  Company Number: US-ROCHE-1302663

PATIENT
  Age: 38 Year
  Sex: Female

DRUGS (2)
  1. XOLAIR [Suspect]
     Indication: CHRONIC SPONTANEOUS URTICARIA
     Dosage: SOLUTION
     Route: 058
     Dates: start: 20111107
  2. XOLAIR [Suspect]
     Route: 058
     Dates: start: 20131026

REACTIONS (3)
  - Urticaria [Not Recovered/Not Resolved]
  - Angioedema [Not Recovered/Not Resolved]
  - Angioedema [Not Recovered/Not Resolved]
